FAERS Safety Report 5669697-2 (Version None)
Quarter: 2008Q1

REPORT INFORMATION
  Report Type: 
  Country: None (occurrence: None)
  Receive Date: 20080317
  Receipt Date: 20080305
  Transmission Date: 20080703
  Serious: Yes (Other)
  Sender: FDA-Public Use
  Company Number: US-WYE-H02986608

PATIENT
  Age: 54 Year
  Sex: Female
  Weight: 74.91 kg

DRUGS (3)
  1. EFFEXOR XR [Suspect]
     Indication: HOT FLUSH
     Route: 048
     Dates: start: 20030101, end: 20070701
  2. EFFEXOR XR [Suspect]
     Route: 048
     Dates: start: 20070701, end: 20070701
  3. EFFEXOR XR [Suspect]
     Route: 048
     Dates: start: 20070701

REACTIONS (7)
  - DEPRESSION [None]
  - DRUG WITHDRAWAL SYNDROME [None]
  - FEELINGS OF WORTHLESSNESS [None]
  - NIGHTMARE [None]
  - PARAESTHESIA [None]
  - SUICIDAL IDEATION [None]
  - WEIGHT INCREASED [None]
